FAERS Safety Report 25292267 (Version 1)
Quarter: 2025Q2

REPORT INFORMATION
  Report Type: Spontaneous
  Country: US (occurrence: US)
  Receive Date: 20250510
  Receipt Date: 20250510
  Transmission Date: 20250717
  Serious: No
  Sender: SANOFI AVENTIS
  Company Number: US-SANOFI-02499282

PATIENT
  Sex: Male

DRUGS (1)
  1. DUPIXENT [Suspect]
     Active Substance: DUPILUMAB
     Indication: Aquagenic pruritus

REACTIONS (4)
  - Root canal infection [Not Recovered/Not Resolved]
  - Herpes virus infection [Unknown]
  - Condition aggravated [Unknown]
  - Off label use [Unknown]
